FAERS Safety Report 12170312 (Version 1)
Quarter: 2016Q1

REPORT INFORMATION
  Report Type: Spontaneous
  Country: US (occurrence: US)
  Receive Date: 20160311
  Receipt Date: 20160311
  Transmission Date: 20160526
  Serious: No
  Sender: FDA-Public Use
  Company Number: US-TEVA-616714USA

PATIENT
  Sex: Male

DRUGS (1)
  1. AMLODIPINE W/VALSARTAN [Suspect]
     Active Substance: AMLODIPINE\VALSARTAN
     Route: 065

REACTIONS (4)
  - Blood pressure inadequately controlled [Unknown]
  - Product substitution issue [Unknown]
  - Blood pressure increased [Unknown]
  - Malaise [Unknown]
